FAERS Safety Report 22334430 (Version 1)
Quarter: 2023Q2

REPORT INFORMATION
  Report Type: Spontaneous
  Country: US (occurrence: US)
  Receive Date: 20230517
  Receipt Date: 20230517
  Transmission Date: 20230722
  Serious: No
  Sender: FDA-Public Use
  Company Number: US-drreddys-SPO/USA/23/0164427

PATIENT
  Sex: Female

DRUGS (4)
  1. ESTRADIOL [Suspect]
     Active Substance: ESTRADIOL
     Indication: Premature menopause
  2. PROGESTERONE [Concomitant]
     Active Substance: PROGESTERONE
     Indication: Turner^s syndrome
  3. NORETHINDRONE ACETATE [Concomitant]
     Active Substance: NORETHINDRONE ACETATE
     Indication: Ovarian failure
  4. LEVONORGESTREL - INTRAUTERINE DELIVERY SYSTEM [Concomitant]
     Indication: Dysmenorrhoea

REACTIONS (2)
  - Pelvic pain [Unknown]
  - Condition aggravated [Unknown]
